FAERS Safety Report 9618673 (Version 1)
Quarter: 2013Q4

REPORT INFORMATION
  Report Type: Spontaneous
  Country: CA (occurrence: CA)
  Receive Date: 20131014
  Receipt Date: 20131014
  Transmission Date: 20140711
  Serious: Yes (Hospitalization, Other)
  Sender: FDA-Public Use
  Company Number: CA-ROCHE-1287147

PATIENT
  Age: 63 Year
  Sex: Female

DRUGS (6)
  1. NAPROXEN [Suspect]
     Indication: PRODUCT USED FOR UNKNOWN INDICATION
     Dosage: THERAPY DURATION: 3.0 DAYS
     Route: 048
  2. DIGOXIN [Concomitant]
     Route: 048
  3. LAMOTRIGINE [Concomitant]
     Route: 048
  4. QUETIAPINE [Concomitant]
     Route: 048
  5. RABEPRAZOLE [Concomitant]
     Route: 048
  6. RISPERIDONE [Concomitant]
     Route: 048

REACTIONS (9)
  - Arthralgia [Recovered/Resolved]
  - Blood creatinine increased [Recovered/Resolved]
  - Blood potassium increased [Recovered/Resolved]
  - Blood urea increased [Recovered/Resolved]
  - Chest pain [Recovered/Resolved]
  - Flank pain [Recovered/Resolved]
  - Haemodialysis [Recovered/Resolved]
  - Pulmonary embolism [Recovered/Resolved]
  - Renal failure acute [Recovered/Resolved]
